FAERS Safety Report 8065914-2 (Version None)
Quarter: 2012Q1

REPORT INFORMATION
  Report Type: 
  Country: None (occurrence: None)
  Receive Date: 20120124
  Receipt Date: 20120118
  Transmission Date: 20120608
  Serious: Yes (Life-Threatening, Hospitalization, Other)
  Sender: FDA-Public Use
  Company Number: DE-ELI_LILLY_AND_COMPANY-DE201201003179

PATIENT
  Age: 33 Year
  Sex: Female

DRUGS (12)
  1. ZYPREXA [Suspect]
     Indication: BIPOLAR DISORDER
     Dosage: 2.5 MG, QD
     Route: 048
  2. LAMOTRIGINE [Concomitant]
     Dosage: 125 MG, QD
  3. LAMOTRIGINE [Concomitant]
     Dosage: 275 MG, QD
  4. TRAZODONE HCL [Concomitant]
     Dosage: 200 MG, QD
  5. TRAZODONE HCL [Concomitant]
     Indication: DEPRESSION
     Dosage: 100 MG, QD
  6. LAMOTRIGINE [Concomitant]
     Dosage: 300 MG, QD
  7. TRAZODONE HCL [Concomitant]
     Dosage: 300 MG, QD
  8. LAMOTRIGINE [Concomitant]
     Dosage: 225 MG, QD
  9. LAMOTRIGINE [Concomitant]
     Indication: DEPRESSION
     Dosage: 25 MG, QD
  10. LAMOTRIGINE [Concomitant]
     Dosage: 75 MG, QD
  11. LAMOTRIGINE [Concomitant]
     Dosage: 175 MG, QD
  12. QUETIAPINE [Concomitant]
     Indication: BIPOLAR DISORDER
     Dosage: 25 MG, QD

REACTIONS (1)
  - ANAPHYLACTIC SHOCK [None]
